FAERS Safety Report 4826741-X (Version None)
Quarter: 2005Q4

REPORT INFORMATION
  Report Type: 
  Country: None (occurrence: None)
  Receive Date: 20051111
  Receipt Date: 20051111
  Transmission Date: 20060501
  Serious: Yes (Other)
  Sender: FDA-Public Use
  Company Number: None

PATIENT
  Age: 45 Year
  Sex: Female
  Weight: 86.1834 kg

DRUGS (1)
  1. CIPRO [Suspect]
     Indication: DIARRHOEA INFECTIOUS
     Dosage: 1 DAILY FOR 7 DAYS    DAILY   PO
     Route: 048
     Dates: start: 20050919, end: 20050925

REACTIONS (6)
  - ACTIVITIES OF DAILY LIVING IMPAIRED [None]
  - ARTHROPATHY [None]
  - CYST [None]
  - JOINT RANGE OF MOTION DECREASED [None]
  - SHOULDER PAIN [None]
  - TENDON INJURY [None]
